FAERS Safety Report 4834812-7 (Version None)
Quarter: 2005Q4

REPORT INFORMATION
  Report Type: 
  Country: None (occurrence: None)
  Receive Date: 20051115
  Receipt Date: 20051104
  Transmission Date: 20060501
  Serious: Yes (Hospitalization)
  Sender: FDA-Public Use
  Company Number: KII-2005-0019405

PATIENT
  Age: 14 Month
  Sex: Female

DRUGS (3)
  1. MORPHINE [Suspect]
     Indication: ACCIDENTAL EXPOSURE
     Dosage: SEE IMAGE, ORAL
     Route: 048
     Dates: start: 20051013, end: 20051013
  2. GABAPENTIN [Suspect]
     Indication: ACCIDENTAL EXPOSURE
     Dosage: SEE IMAGE, ORAL
     Route: 048
     Dates: start: 20051013, end: 20051013
  3. BETA BLOCKING AGENT () [Suspect]
     Indication: ACCIDENTAL EXPOSURE
     Dosage: SEE IMAGE, ORAL
     Route: 048
     Dates: start: 20051013, end: 20051013

REACTIONS (3)
  - ACCIDENTAL DRUG INTAKE BY CHILD [None]
  - MULTIPLE DRUG OVERDOSE ACCIDENTAL [None]
  - SEDATION [None]
